FAERS Safety Report 6124716-4 (Version None)
Quarter: 2009Q1

REPORT INFORMATION
  Report Type: 
  Country: None (occurrence: None)
  Receive Date: 20090319
  Receipt Date: 20090311
  Transmission Date: 20090719
  Serious: Yes (Other)
  Sender: FDA-Public Use
  Company Number: PHHY2009JP05807

PATIENT
  Sex: Female
  Weight: 60 kg

DRUGS (15)
  1. ZOMETA [Suspect]
     Indication: BONE LESION
     Dosage: 4 MG (EVERY THREE WEEKS)
     Route: 042
     Dates: start: 20060509
  2. ZOMETA [Suspect]
     Indication: MULTIPLE MYELOMA
     Dosage: 4 MG, QMO
     Route: 042
     Dates: start: 20070511, end: 20080501
  3. ZOMETA [Suspect]
     Dosage: UNK
     Route: 042
     Dates: start: 20080901, end: 20081201
  4. BISPHONAL [Suspect]
     Indication: MULTIPLE MYELOMA
     Dosage: 10 MG
     Route: 042
     Dates: start: 20050922, end: 20060401
  5. VINCRISTINE SULFATE [Concomitant]
     Dosage: UNK
     Route: 042
     Dates: start: 20050623, end: 20050831
  6. ADRIACIN [Concomitant]
     Dosage: UNK
     Route: 042
     Dates: start: 20050623, end: 20050831
  7. DEXAMETHASONE ACETATE [Concomitant]
     Indication: MULTIPLE MYELOMA
     Dosage: UNK
     Route: 042
     Dates: start: 20050623, end: 20050831
  8. ALKERAN [Concomitant]
     Dosage: UNK
     Route: 048
     Dates: start: 20050901, end: 20080401
  9. PREDONINE [Concomitant]
     Indication: MULTIPLE MYELOMA
     Dosage: UNK
     Dates: start: 20050901, end: 20080401
  10. ADALAT [Concomitant]
     Indication: HYPERTENSION
     Dosage: 10 MG, UNK
     Route: 048
  11. ASPIRIN [Concomitant]
     Indication: HYPERTENSION
     Dosage: 100 MG, UNK
     Route: 048
  12. WARFARIN SODIUM [Concomitant]
     Indication: HYPERTENSION
     Dosage: 1.5 MG, UNK
     Route: 048
  13. CYANOCOBALAMIN [Concomitant]
     Indication: PULMONARY EMBOLISM
     Dosage: 500 UG, UNK
     Route: 048
  14. PARIET [Concomitant]
     Indication: PULMONARY EMBOLISM
     Dosage: 10 MG, UNK
     Route: 048
  15. VELCADE [Concomitant]
     Indication: MULTIPLE MYELOMA
     Dosage: 1.6 MG, UNK
     Dates: start: 20080601, end: 20080601

REACTIONS (9)
  - BONE DISORDER [None]
  - BONE PAIN [None]
  - C-REACTIVE PROTEIN INCREASED [None]
  - MUCOSAL INFLAMMATION [None]
  - MULTIPLE MYELOMA [None]
  - ORAL NEOPLASM [None]
  - OSTEOMYELITIS [None]
  - OSTEONECROSIS [None]
  - TRISMUS [None]
